FAERS Safety Report 8340446-2 (Version None)
Quarter: 2012Q2

REPORT INFORMATION
  Report Type: 
  Country: None (occurrence: None)
  Receive Date: 20120507
  Receipt Date: 20090615
  Transmission Date: 20120825
  Serious: Yes (Hospitalization)
  Sender: FDA-Public Use
  Company Number: US-TEVA-2009007337

PATIENT
  Sex: Male

DRUGS (13)
  1. ATIVAN [Concomitant]
  2. VALTREX [Concomitant]
  3. LISINOPRIL [Concomitant]
  4. FISH OIL [Concomitant]
  5. VITAMIN E [Concomitant]
  6. TREANDA [Suspect]
     Route: 042
  7. SIMVASTATIN [Concomitant]
  8. COMPAZINE [Concomitant]
  9. FLUOXETINE [Concomitant]
  10. OXYCODONE HCL [Concomitant]
  11. RITUXIMAB [Suspect]
     Route: 042
  12. FLUOXETINE [Concomitant]
  13. VELCADE [Suspect]
     Route: 042

REACTIONS (1)
  - FEBRILE NEUTROPENIA [None]
